FAERS Safety Report 4884665-6 (Version None)
Quarter: 2006Q1

REPORT INFORMATION
  Report Type: 
  Country: None (occurrence: None)
  Receive Date: 20060117
  Receipt Date: 20060105
  Transmission Date: 20060701
  Serious: Yes (Hospitalization)
  Sender: FDA-Public Use
  Company Number: 2006PV006614

PATIENT
  Age: 69 Year
  Sex: Male
  Weight: 145.151 kg

DRUGS (2)
  1. BYETTA [Suspect]
     Indication: DIABETES MELLITUS NON-INSULIN-DEPENDENT
     Dosage: 5 MCG; BID; SC
     Route: 058
     Dates: start: 20051201
  2. NITROGLYCERIN [Concomitant]

REACTIONS (3)
  - CHEST PAIN [None]
  - HYPOTENSION [None]
  - INFECTION [None]
